FAERS Safety Report 20664826 (Version 1)
Quarter: 2022Q2

REPORT INFORMATION
  Report Type: Spontaneous
  Country: CH (occurrence: None)
  Receive Date: 20220401
  Receipt Date: 20220401
  Transmission Date: 20220721
  Serious: Yes (Other)
  Sender: FDA-Public Use
  Company Number: 2022A132511

PATIENT
  Sex: Female

DRUGS (2)
  1. LYNPARZA [Suspect]
     Active Substance: OLAPARIB
     Indication: Breast cancer metastatic
     Dosage: UNKNOWN
     Route: 048
     Dates: end: 2021
  2. LYNPARZA [Suspect]
     Active Substance: OLAPARIB
     Indication: BRCA2 gene mutation
     Dosage: UNKNOWN
     Route: 048
     Dates: end: 2021

REACTIONS (6)
  - Pancytopenia [Unknown]
  - Haemorrhagic diathesis [Unknown]
  - Myelofibrosis [Unknown]
  - Metastases to bone [Unknown]
  - Skeletal dysplasia [Unknown]
  - Osteitis [Unknown]
